FAERS Safety Report 8560867-2 (Version None)
Quarter: 2012Q3

REPORT INFORMATION
  Report Type: 
  Country: None (occurrence: None)
  Receive Date: 20120727
  Receipt Date: 20120727
  Transmission Date: 20120928
  Serious: Yes (Hospitalization)
  Sender: FDA-Public Use
  Company Number: None

PATIENT
  Age: 71 Year
  Sex: Male
  Weight: 73 kg

DRUGS (15)
  1. PRAVASTATIN [Concomitant]
  2. D3 [Concomitant]
  3. POTASSIUM [Concomitant]
  4. ZINC SULFATE [Concomitant]
  5. B6 [Concomitant]
  6. METOPROLOL TARTRATE [Concomitant]
  7. ALPRAZOLAM [Concomitant]
  8. FOLIC ACID [Concomitant]
  9. DIGOXIN [Suspect]
     Indication: CORONARY ARTERY DISEASE
     Dosage: 0.25MG DAILY PO CHRONIC
     Route: 048
  10. VENLAFAXINE [Concomitant]
  11. LAMOTRIGINE [Concomitant]
  12. SERTRALINE [Concomitant]
  13. LASARTAN [Concomitant]
  14. AMLODIPINE [Concomitant]
  15. WARFARIN SODIUM [Concomitant]

REACTIONS (9)
  - VOMITING [None]
  - NAUSEA [None]
  - ASTHENIA [None]
  - HYPERTENSION [None]
  - DECREASED APPETITE [None]
  - FATIGUE [None]
  - BLOOD CREATINE INCREASED [None]
  - WEIGHT DECREASED [None]
  - TOXICITY TO VARIOUS AGENTS [None]
